FAERS Safety Report 5441361-4 (Version None)
Quarter: 2007Q3

REPORT INFORMATION
  Report Type: 
  Country: None (occurrence: None)
  Receive Date: 20070903
  Receipt Date: 20070827
  Transmission Date: 20080115
  Serious: Yes (Hospitalization, Other)
  Sender: FDA-Public Use
  Company Number: PHEH2007US11624

PATIENT
  Age: 87 Year
  Sex: Female

DRUGS (3)
  1. DIOVAN HCT [Suspect]
     Dosage: 80/12.5 MG QD
     Route: 048
  2. DIOVAN HCT [Suspect]
     Dosage: 80/12.5 MG X 2 QD
     Route: 048
  3. HYDROCHLOROTHIAZIDE [Suspect]

REACTIONS (4)
  - BLOOD PRESSURE INADEQUATELY CONTROLLED [None]
  - INFLUENZA [None]
  - MALAISE [None]
  - RETINAL ISCHAEMIA [None]
